FAERS Safety Report 5259466-X (Version None)
Quarter: 2007Q1

REPORT INFORMATION
  Report Type: 
  Country: None (occurrence: None)
  Receive Date: 20070305
  Receipt Date: 20070226
  Transmission Date: 20070707
  Serious: Yes (Hospitalization, Other)
  Sender: FDA-Public Use
  Company Number: 234194

PATIENT
  Age: 58 Year
  Sex: Female
  Weight: 79.4 kg

DRUGS (6)
  1. XOLAIR [Suspect]
     Indication: ASTHMA
     Dosage: 300 MG, 1/MONTH, SUBCUTANEOUS
     Route: 058
     Dates: start: 20041101, end: 20061201
  2. NASACORT [Concomitant]
  3. ADVAIR DISKUS 100/50 [Concomitant]
  4. PAXIL [Concomitant]
  5. SINGULAIR [Concomitant]
  6. THEOPHYLLINE [Concomitant]

REACTIONS (1)
  - CUTANEOUS LUPUS ERYTHEMATOSUS [None]
